FAERS Safety Report 17076654 (Version 4)
Quarter: 2020Q3

REPORT INFORMATION
  Report Type: Spontaneous
  Country: US (occurrence: US)
  Receive Date: 20191126
  Receipt Date: 20200812
  Transmission Date: 20201102
  Serious: Yes (Other)
  Sender: FDA-Public Use
  Company Number: US-SA-2019SA327716

PATIENT

DRUGS (1)
  1. KEVZARA [Suspect]
     Active Substance: SARILUMAB
     Indication: PRODUCT USED FOR UNKNOWN INDICATION
     Dosage: 200 MG, QOW
     Route: 058
     Dates: start: 201904, end: 2020

REACTIONS (4)
  - Illness [Unknown]
  - Herpes zoster [Unknown]
  - Infection [Unknown]
  - Wound infection [Unknown]

NARRATIVE: CASE EVENT DATE: 2019
